FAERS Safety Report 9663356 (Version 2)
Quarter: 2013Q4

REPORT INFORMATION
  Report Type: Spontaneous
  Country: FI (occurrence: FI)
  Receive Date: 20131101
  Receipt Date: 20131101
  Transmission Date: 20140711
  Serious: Yes (Other)
  Sender: FDA-Public Use
  Company Number: FI-BRISTOL-MYERS SQUIBB COMPANY-19425727

PATIENT
  Age: 67 Year
  Sex: Male

DRUGS (9)
  1. BYDUREON 2MG SUSPENSION [Suspect]
     Indication: TYPE 2 DIABETES MELLITUS
  2. LANTUS [Concomitant]
  3. DIFORMIN [Concomitant]
  4. NOVORAPID [Concomitant]
  5. CARDACE [Concomitant]
  6. CLOPIDOGREL BISULFATE [Concomitant]
  7. AMLODIPINE [Concomitant]
  8. CARDACE [Concomitant]
  9. EMCONCOR [Concomitant]

REACTIONS (5)
  - Fatigue [Recovering/Resolving]
  - Pain in extremity [Recovering/Resolving]
  - Gastric disorder [Recovering/Resolving]
  - Chest pain [Recovering/Resolving]
  - Constipation [Recovering/Resolving]
